FAERS Safety Report 6833621-7 (Version None)
Quarter: 2010Q3

REPORT INFORMATION
  Report Type: 
  Country: None (occurrence: None)
  Receive Date: 20100712
  Receipt Date: 20070329
  Transmission Date: 20110219
  Serious: No
  Sender: FDA-Public Use
  Company Number: US-PFIZER INC-2007027206

PATIENT
  Sex: Male
  Weight: 84.82 kg

DRUGS (8)
  1. CHANTIX [Suspect]
     Indication: SMOKING CESSATION THERAPY
     Dates: start: 20070322
  2. LEVOTHYROXINE [Concomitant]
  3. ZOLOFT [Concomitant]
  4. TERAZOSIN HCL [Concomitant]
  5. HYDROCHLOROTHIAZIDE [Concomitant]
  6. POTASSIUM CHLORIDE [Concomitant]
  7. NEURONTIN [Concomitant]
  8. TOPAMAX [Concomitant]

REACTIONS (1)
  - DIARRHOEA [None]
